FAERS Safety Report 7947203-7 (Version None)
Quarter: 2011Q4

REPORT INFORMATION
  Report Type: 
  Country: None (occurrence: None)
  Receive Date: 20111129
  Receipt Date: 20111128
  Transmission Date: 20120403
  Serious: Yes (Hospitalization)
  Sender: FDA-Public Use
  Company Number: HR-BAYER-2011-114182

PATIENT
  Age: 51 Year
  Sex: Male

DRUGS (1)
  1. ULTRAVIST 370 SOLUTION FOR INFUSION [Suspect]
     Indication: ARTERIOGRAM CORONARY
     Dosage: 80 ML

REACTIONS (3)
  - HYPERHIDROSIS [None]
  - CHOKING [None]
  - HYPOTENSION [None]
